FAERS Safety Report 6114544-8 (Version None)
Quarter: 2009Q1

REPORT INFORMATION
  Report Type: 
  Country: None (occurrence: None)
  Receive Date: 20090313
  Receipt Date: 20090210
  Transmission Date: 20090719
  Serious: No
  Sender: FDA-Public Use
  Company Number: US-BAYER-200912921NA

PATIENT
  Sex: Female

DRUGS (1)
  1. CLIMARA [Suspect]
     Indication: NIGHT SWEATS
     Route: 062

REACTIONS (2)
  - NIGHT SWEATS [None]
  - PRODUCT QUALITY ISSUE [None]
